FAERS Safety Report 9893295 (Version 4)
Quarter: 2014Q2

REPORT INFORMATION
  Report Type: Spontaneous
  Country: US (occurrence: US)
  Receive Date: 20140213
  Receipt Date: 20140529
  Transmission Date: 20141212
  Serious: Yes (Hospitalization)
  Sender: FDA-Public Use
  Company Number: US-JNJFOC-20140203508

PATIENT
  Age: 76 Year
  Sex: Male
  Weight: 81.65 kg

DRUGS (14)
  1. ZYTIGA [Suspect]
     Indication: PROSTATE CANCER
     Dosage: 250 MG X 4 TABLETS DAILY
     Route: 048
     Dates: start: 20130515
  2. PREDNISONE [Suspect]
     Indication: PROSTATE CANCER
     Route: 048
     Dates: start: 20130515
  3. ZOCOR [Concomitant]
     Indication: BLOOD CHOLESTEROL ABNORMAL
     Route: 048
  4. ZESTRIL [Concomitant]
     Indication: HYPERTENSION
     Route: 048
  5. OMEPRAZOLE [Concomitant]
     Indication: GASTRIC DISORDER
     Route: 048
  6. PROBIOTIC [Concomitant]
     Indication: GASTRIC DISORDER
     Route: 048
  7. FISH OIL [Concomitant]
     Indication: NUTRITIONAL SUPPLEMENTATION
     Route: 048
  8. VITAMIN B12 [Concomitant]
     Indication: PRODUCT USED FOR UNKNOWN INDICATION
     Route: 048
  9. CALCIUM [Concomitant]
     Indication: PRODUCT USED FOR UNKNOWN INDICATION
     Route: 048
  10. BABY ASPIRIN [Concomitant]
     Route: 065
  11. METAMUCIL [Concomitant]
     Route: 065
  12. DIGESTIVE ADVANTAGE [Concomitant]
     Route: 065
  13. XGEVA [Concomitant]
     Route: 065
  14. CALTRATE [Concomitant]
     Route: 065

REACTIONS (2)
  - Abdominal pain [Recovering/Resolving]
  - Tooth abscess [Recovering/Resolving]
